FAERS Safety Report 21871412 (Version 1)
Quarter: 2023Q1

REPORT INFORMATION
  Report Type: Spontaneous
  Country: AU (occurrence: AU)
  Receive Date: 20230117
  Receipt Date: 20230117
  Transmission Date: 20230417
  Serious: Yes (Other)
  Sender: FDA-Public Use
  Company Number: AU-MYLANLABS-2023M1003600

PATIENT
  Sex: Female

DRUGS (5)
  1. CLOZARIL [Suspect]
     Active Substance: CLOZAPINE
     Indication: Schizophrenia
     Dosage: 150 MILLIGRAM
     Route: 048
     Dates: start: 20221223
  2. CLOZARIL [Suspect]
     Active Substance: CLOZAPINE
     Dosage: 200 MILLIGRAM (50MG MANE, 150MG NOCTE)(200MG (DAILY DOSE))
     Route: 048
     Dates: end: 20230105
  3. OLANZAPINE [Concomitant]
     Active Substance: OLANZAPINE
     Dosage: 10 MILLIGRAM, HS
     Route: 065
  4. PANTOPRAZOLE [Concomitant]
     Active Substance: PANTOPRAZOLE
     Dosage: 40 MILLIGRAM, HS
     Route: 065
  5. PREGABALIN [Concomitant]
     Active Substance: PREGABALIN
     Dosage: 150 MILLIGRAM, AM
     Route: 065

REACTIONS (5)
  - Myocarditis [Unknown]
  - Pneumonia [Unknown]
  - C-reactive protein increased [Unknown]
  - Musculoskeletal stiffness [Unknown]
  - Salivary hypersecretion [Unknown]
